FAERS Safety Report 10377575 (Version 1)
Quarter: 2014Q3

REPORT INFORMATION
  Report Type: Spontaneous
  Country: US (occurrence: US)
  Receive Date: 20140812
  Receipt Date: 20140812
  Transmission Date: 20150326
  Serious: Yes (Hospitalization)
  Sender: FDA-Public Use
  Company Number: PHEH2014US015597

PATIENT
  Sex: Male

DRUGS (4)
  1. TOBI [Suspect]
     Active Substance: TOBRAMYCIN
     Dosage: 300 MG
     Dates: start: 201311
  2. TOBI [Suspect]
     Active Substance: TOBRAMYCIN
     Dosage: UKN
     Dates: start: 20140802
  3. ALBUTEROL. [Concomitant]
     Active Substance: ALBUTEROL
     Dosage: UKN
  4. PREVACID [Concomitant]
     Active Substance: LANSOPRAZOLE
     Dosage: UKN

REACTIONS (4)
  - Tracheal disorder [Unknown]
  - Drug administered to patient of inappropriate age [Unknown]
  - Dyspnoea [Unknown]
  - Mucosal discolouration [Unknown]

NARRATIVE: CASE EVENT DATE: 2013
